FAERS Safety Report 25223077 (Version 5)
Quarter: 2025Q3

REPORT INFORMATION
  Report Type: Report from Study
  Country: EU (occurrence: EU)
  Receive Date: 20250422
  Receipt Date: 20250709
  Transmission Date: 20251021
  Serious: Yes (Hospitalization, Other)
  Sender: TAKEDA
  Company Number: EU-JNJFOC-20250424721

PATIENT
  Sex: Female
  Weight: 41.9 kg

DRUGS (13)
  1. BORTEZOMIB [Suspect]
     Active Substance: BORTEZOMIB
     Indication: Plasma cell myeloma
     Dates: start: 20250328, end: 20250407
  2. BORTEZOMIB [Suspect]
     Active Substance: BORTEZOMIB
     Dates: start: 20250328, end: 20250508
  3. BORTEZOMIB [Suspect]
     Active Substance: BORTEZOMIB
     Dates: start: 20250328, end: 20250613
  4. DEXAMETHASONE [Suspect]
     Active Substance: DEXAMETHASONE
     Indication: Plasma cell myeloma
     Dates: start: 20250328, end: 20250408
  5. DEXAMETHASONE [Suspect]
     Active Substance: DEXAMETHASONE
     Dates: start: 20250328, end: 20250519
  6. DEXAMETHASONE [Suspect]
     Active Substance: DEXAMETHASONE
     Dates: start: 20250328, end: 20250617
  7. DARZALEX [Suspect]
     Active Substance: DARATUMUMAB
     Indication: Plasma cell myeloma
     Dates: start: 20250328, end: 20250404
  8. DARZALEX [Suspect]
     Active Substance: DARATUMUMAB
     Dates: start: 20250328, end: 20250519
  9. DARZALEX [Suspect]
     Active Substance: DARATUMUMAB
     Dates: start: 20250328, end: 20250617
  10. LENALIDOMIDE [Suspect]
     Active Substance: LENALIDOMIDE
     Indication: Plasma cell myeloma
     Dates: start: 20250328, end: 20250409
  11. LENALIDOMIDE [Suspect]
     Active Substance: LENALIDOMIDE
     Dates: start: 20250411, end: 20250422
  12. LENALIDOMIDE [Suspect]
     Active Substance: LENALIDOMIDE
     Dates: start: 20250411, end: 20250518
  13. LENALIDOMIDE [Suspect]
     Active Substance: LENALIDOMIDE
     Dates: start: 20250411, end: 20250618

REACTIONS (4)
  - Pancytopenia [Recovered/Resolved]
  - Metabolic acidosis [Recovered/Resolved]
  - Renal impairment [Recovered/Resolved]
  - General physical health deterioration [Recovered/Resolved]

NARRATIVE: CASE EVENT DATE: 20250411
